FAERS Safety Report 24376368 (Version 2)
Quarter: 2024Q4

REPORT INFORMATION
  Report Type: Spontaneous
  Country: CN (occurrence: CN)
  Receive Date: 20240930
  Receipt Date: 20241009
  Transmission Date: 20250115
  Serious: Yes (Hospitalization, Other)
  Sender: ARGENX BVBA
  Company Number: CN-ARGENX-2024-ARGX-CN008236

PATIENT

DRUGS (7)
  1. VYVGART [Suspect]
     Active Substance: EFGARTIGIMOD ALFA-FCAB
     Indication: Guillain-Barre syndrome
     Dosage: 60 ML
     Route: 042
     Dates: start: 20240821, end: 20240828
  2. VYVGART [Suspect]
     Active Substance: EFGARTIGIMOD ALFA-FCAB
     Indication: Neuromyelitis optica spectrum disorder
  3. CEFOPERAZONE SODIUM\SULBACTAM SODIUM [Suspect]
     Active Substance: CEFOPERAZONE SODIUM\SULBACTAM SODIUM
     Indication: Pneumonia klebsiella
     Dosage: UNK,3G + 0.9% SODIUM CHLORIDE INJECTION 100ML IVGTT
     Route: 042
     Dates: start: 20240906, end: 20240908
  4. SODIUM CHLORIDE [Concomitant]
     Active Substance: SODIUM CHLORIDE
     Indication: Vehicle solution use
     Dosage: 65 ML, ONCE A DAY
     Route: 042
     Dates: start: 20240821
  5. SODIUM CHLORIDE [Concomitant]
     Active Substance: SODIUM CHLORIDE
     Dosage: 65 ML, ONCE A DAY
     Route: 042
     Dates: start: 20240828
  6. SODIUM CHLORIDE [Concomitant]
     Active Substance: SODIUM CHLORIDE
     Dosage: 100 ML, THRICE A DAY
     Route: 042
     Dates: start: 20240905, end: 20240906
  7. SODIUM CHLORIDE [Concomitant]
     Active Substance: SODIUM CHLORIDE
     Dosage: 100 ML, TWICE A DAY
     Route: 042
     Dates: start: 20240906, end: 20240908

REACTIONS (5)
  - Mental fatigue [Unknown]
  - Muscular weakness [Unknown]
  - Cough [Unknown]
  - Pneumonia klebsiella [Unknown]
  - Dermatitis allergic [Recovered/Resolved]

NARRATIVE: CASE EVENT DATE: 20240829
